FAERS Safety Report 12111669 (Version 1)
Quarter: 2016Q1

REPORT INFORMATION
  Report Type: Spontaneous
  Country: US (occurrence: US)
  Receive Date: 20160224
  Receipt Date: 20160224
  Transmission Date: 20160526
  Serious: No
  Sender: FDA-Public Use
  Company Number: US-JAZZ-2015-US-020963

PATIENT
  Age: 69 Year
  Sex: Female

DRUGS (4)
  1. PRIALT [Suspect]
     Active Substance: ZICONOTIDE ACETATE
     Indication: POST LAMINECTOMY SYNDROME
  2. PRIALT [Suspect]
     Active Substance: ZICONOTIDE ACETATE
     Indication: PROCEDURAL PAIN
     Dosage: UNK ?G, QH
     Route: 037
  3. BUPIVACAINE HYDROCHLORIDE. [Suspect]
     Active Substance: BUPIVACAINE HYDROCHLORIDE
     Indication: POST LAMINECTOMY SYNDROME
  4. BUPIVACAINE HYDROCHLORIDE. [Suspect]
     Active Substance: BUPIVACAINE HYDROCHLORIDE
     Indication: PROCEDURAL PAIN
     Dosage: UNK MG, QH
     Route: 037

REACTIONS (2)
  - Eye injury [Unknown]
  - Syringe issue [Unknown]

NARRATIVE: CASE EVENT DATE: 20151201
